FAERS Safety Report 8883021 (Version 1)
Quarter: 2012Q4

REPORT INFORMATION
  Report Type: 
  Country: IT (occurrence: IT)
  Receive Date: 20121103
  Receipt Date: 20121103
  Transmission Date: 20130627
  Serious: Yes (Disabling)
  Sender: FDA-Public Use
  Company Number: IT-ACCORD-015082

PATIENT
  Age: 77 Year
  Sex: Female

DRUGS (1)
  1. ANASTROZOLE [Suspect]
     Indication: BREAST CANCER
     Dosage: daily
     Route: 048
     Dates: start: 20120625, end: 20120703

REACTIONS (3)
  - Complex regional pain syndrome [Recovered/Resolved with Sequelae]
  - Cartilage injury [Recovered/Resolved with Sequelae]
  - Synovitis [Recovered/Resolved with Sequelae]
